FAERS Safety Report 4870878-6 (Version None)
Quarter: 2006Q1

REPORT INFORMATION
  Report Type: 
  Country: None (occurrence: None)
  Receive Date: 20060103
  Receipt Date: 20051017
  Transmission Date: 20060701
  Serious: Yes (Hospitalization)
  Sender: FDA-Public Use
  Company Number: US-MERCK-0510USA07831

PATIENT
  Age: 60 Year
  Sex: Male
  Weight: 98 kg

DRUGS (6)
  1. VIOXX [Suspect]
     Indication: RHEUMATOID ARTHRITIS
     Route: 048
     Dates: start: 20010301, end: 20040930
  2. AUGMENTIN '125' [Concomitant]
     Route: 065
  3. ACETAMINOPHEN AND HYDROCODONE BITARTRATE [Concomitant]
     Route: 065
  4. LEVAQUIN [Concomitant]
     Route: 065
  5. METOPROLOL [Concomitant]
     Route: 065
  6. LISINOPRIL [Concomitant]
     Route: 065

REACTIONS (5)
  - ANEURYSM [None]
  - ARTERIOSCLEROSIS [None]
  - CARDIAC DISORDER [None]
  - CARDIAC VALVE DISEASE [None]
  - MYOCARDIAL INFARCTION [None]
